FAERS Safety Report 7026800-X (Version None)
Quarter: 2010Q4

REPORT INFORMATION
  Report Type: 
  Country: None (occurrence: None)
  Receive Date: 20101004
  Receipt Date: 20100928
  Transmission Date: 20110411
  Serious: Yes (Other)
  Sender: FDA-Public Use
  Company Number: FR-ROCHE-730028

PATIENT
  Age: 21 Year
  Sex: Female
  Weight: 60 kg

DRUGS (1)
  1. RIVOTRIL [Suspect]
     Indication: PAIN
     Dosage: DROPS; STRENGTH: 2.5 MG/ML; ONCE IN ONE INTAKE
     Route: 048
     Dates: start: 20100907

REACTIONS (6)
  - ATAXIA [None]
  - DRUG PRESCRIBING ERROR [None]
  - HYPOTONIA [None]
  - MEDICATION ERROR [None]
  - SOMNOLENCE [None]
  - VOMITING [None]
